FAERS Safety Report 25476098 (Version 1)
Quarter: 2025Q2

REPORT INFORMATION
  Report Type: Spontaneous
  Country: CN (occurrence: CN)
  Receive Date: 20250625
  Receipt Date: 20250625
  Transmission Date: 20250716
  Serious: Yes (Other)
  Sender: Kenvue
  Company Number: CN-KENVUE-20250609576

PATIENT

DRUGS (4)
  1. RHINOCORT [Suspect]
     Active Substance: BUDESONIDE
     Indication: Nasal obstruction
     Dosage: 2 DOSAGE FORM, TWICE A DAY, 128.000 MICROGRAM
     Route: 045
     Dates: start: 20250608, end: 20250608
  2. RHINOCORT [Suspect]
     Active Substance: BUDESONIDE
     Indication: Rhinorrhoea
  3. RHINOCORT [Suspect]
     Active Substance: BUDESONIDE
     Indication: Sneezing
  4. RHINOCORT [Suspect]
     Active Substance: BUDESONIDE
     Indication: Rhinitis

REACTIONS (5)
  - Laryngeal oedema [Recovered/Resolved]
  - Dysphagia [Recovered/Resolved]
  - Dyspnoea [Recovered/Resolved]
  - Adverse event [Recovered/Resolved]
  - Epistaxis [Recovered/Resolved]

NARRATIVE: CASE EVENT DATE: 20250608
